FAERS Safety Report 5099138-8 (Version None)
Quarter: 2006Q3

REPORT INFORMATION
  Report Type: 
  Country: None (occurrence: None)
  Receive Date: 20060731
  Receipt Date: 20050804
  Transmission Date: 20061208
  Serious: Yes (Hospitalization)
  Sender: FDA-Public Use
  Company Number: 216462

PATIENT
  Age: 75 Year
  Sex: Female
  Weight: 58 kg

DRUGS (5)
  1. RITUXAN [Suspect]
     Indication: B-CELL LYMPHOMA
     Dosage: 500 MG, Q3W, INTRAVENOUS
     Route: 042
     Dates: start: 20050308, end: 20050510
  2. CYTOXAN [Concomitant]
  3. NOVANTRONE [Concomitant]
  4. XANAX [Concomitant]
  5. SYNTHROID (LEVONTHYROXINE SODIUM) [Concomitant]

REACTIONS (3)
  - DYSPNOEA [None]
  - HYPERSENSITIVITY [None]
  - HYPERTENSION [None]
